FAERS Safety Report 6169992-7 (Version None)
Quarter: 2009Q2

REPORT INFORMATION
  Report Type: 
  Country: None (occurrence: None)
  Receive Date: 20090428
  Receipt Date: 20090320
  Transmission Date: 20091009
  Serious: Yes (Other)
  Sender: FDA-Public Use
  Company Number: SI-NOVOPROD-286547

PATIENT

DRUGS (3)
  1. LEVEMIR [Suspect]
     Indication: DRUG USE FOR UNKNOWN INDICATION
     Dosage: 12 U, QD
     Route: 064
     Dates: end: 20080618
  2. INSULATARD FLEXPEN [Suspect]
     Indication: DRUG USE FOR UNKNOWN INDICATION
     Dosage: 12 U, QD
     Route: 064
     Dates: start: 20080618
  3. NOVORAPID PENFILL [Suspect]
     Indication: DRUG USE FOR UNKNOWN INDICATION
     Dosage: VARIABLE
     Route: 064
     Dates: start: 20080618

REACTIONS (1)
  - PREMATURE BABY [None]
